FAERS Safety Report 4796125-1 (Version None)
Quarter: 2005Q4

REPORT INFORMATION
  Report Type: 
  Country: None (occurrence: None)
  Receive Date: 20051007
  Receipt Date: 20051003
  Transmission Date: 20060501
  Serious: Yes (Hospitalization)
  Sender: FDA-Public Use
  Company Number: USA-2005-0021406

PATIENT
  Age: 79 Year
  Sex: Male

DRUGS (4)
  1. OXYCONTIN [Suspect]
     Dosage: 140 MG, DAILY
     Dates: start: 20050711
  2. OXYCODONE HCL [Suspect]
     Dosage: SEE IMAGE
     Dates: start: 20050215, end: 20050905
  3. OXYCODONE HCL [Suspect]
     Dosage: SEE IMAGE
     Dates: start: 20050906
  4. IBUPROFEN [Concomitant]

REACTIONS (4)
  - CONFUSIONAL STATE [None]
  - DYSPNOEA [None]
  - MENTAL STATUS CHANGES [None]
  - PNEUMONIA [None]
